FAERS Safety Report 9962691 (Version 2)
Quarter: 2014Q1

REPORT INFORMATION
  Report Type: Report from Study
  Country: US (occurrence: US)
  Receive Date: 20140305
  Receipt Date: 20140305
  Transmission Date: 20141002
  Serious: Yes (Hospitalization)
  Sender: FDA-Public Use
  Company Number: US-ABBVIE-13P-163-1089271-00

PATIENT
  Age: 18 Year
  Sex: Male

DRUGS (3)
  1. HUMIRA [Suspect]
     Indication: COLITIS ULCERATIVE
     Dates: start: 20121205, end: 20130524
  2. HUMIRA [Suspect]
     Indication: CROHN^S DISEASE
  3. LIALDA [Concomitant]
     Indication: PRODUCT USED FOR UNKNOWN INDICATION
     Dates: end: 20130526

REACTIONS (7)
  - Clostridium difficile infection [Recovering/Resolving]
  - Fatigue [Not Recovered/Not Resolved]
  - Vomiting [Not Recovered/Not Resolved]
  - Arthralgia [Not Recovered/Not Resolved]
  - Acne [Not Recovered/Not Resolved]
  - Decreased appetite [Not Recovered/Not Resolved]
  - Frequent bowel movements [Not Recovered/Not Resolved]
